FAERS Safety Report 4359418-8 (Version None)
Quarter: 2004Q2

REPORT INFORMATION
  Report Type: 
  Country: None (occurrence: None)
  Receive Date: 20040518
  Receipt Date: 20040319
  Transmission Date: 20050107
  Serious: Yes (Other)
  Sender: FDA-Public Use
  Company Number: 200412127US

PATIENT
  Age: 75 Year
  Sex: Female
  Weight: 77.2 kg

DRUGS (11)
  1. LANTUS [Suspect]
     Indication: DIABETES MELLITUS NON-INSULIN-DEPENDENT
     Dosage: DOSE UNIT: UNITS
     Route: 051
  2. REGULAR INSULIN [Concomitant]
     Dosage: DOSE: SLIDING SCALE
  3. TICLID [Concomitant]
  4. ASPIRIN [Concomitant]
  5. VASOTEC [Concomitant]
  6. GLUCOTROL [Concomitant]
  7. PREVACID [Concomitant]
  8. REGLAN [Concomitant]
     Dosage: FREQUENCY: BEFORE MEALS
  9. LIPITOR [Concomitant]
  10. NITRO PATCH [Concomitant]
  11. HUMULIN N [Concomitant]
     Dosage: DOSE: UNK

REACTIONS (3)
  - BLOOD GLUCOSE DECREASED [None]
  - PHARMACEUTICAL PRODUCT COMPLAINT [None]
  - PNEUMONIA ASPIRATION [None]
